FAERS Safety Report 4724598-9 (Version None)
Quarter: 2005Q3

REPORT INFORMATION
  Report Type: 
  Country: None (occurrence: None)
  Receive Date: 20050719
  Receipt Date: 20050719
  Transmission Date: 20060218
  Serious: No
  Sender: FDA-Public Use
  Company Number: None

PATIENT
  Age: 46 Year
  Sex: Male

DRUGS (2)
  1. PEG INTRON ALPHA 2A [Suspect]
     Indication: HEPATITIS
     Dosage: 1 SYRINGE SQ Q WEEK
     Route: 058
  2. RIBAVIRIN [Suspect]
     Dosage: 2 CAPS BID

REACTIONS (2)
  - DEPRESSION [None]
  - SUICIDE ATTEMPT [None]
